FAERS Safety Report 5247449-5 (Version None)
Quarter: 2007Q1

REPORT INFORMATION
  Report Type: 
  Country: None (occurrence: None)
  Receive Date: 20070223
  Receipt Date: 20070223
  Transmission Date: 20070707
  Serious: Yes (Hospitalization, Disabling)
  Sender: FDA-Public Use
  Company Number: None

PATIENT
  Sex: Male
  Weight: 83.9154 kg

DRUGS (2)
  1. ZOMETA [Suspect]
     Indication: BONE DISORDER
     Dosage: 4 MG QMONTH IV
     Route: 042
     Dates: start: 20030401
  2. ZOMETA [Suspect]
     Indication: BONE DISORDER
     Dosage: 4 MG QMONTH IV
     Route: 042
     Dates: start: 20061001

REACTIONS (1)
  - OSTEONECROSIS [None]
